FAERS Safety Report 5193693-5 (Version None)
Quarter: 2006Q4

REPORT INFORMATION
  Report Type: 
  Country: None (occurrence: None)
  Receive Date: 20061222
  Receipt Date: 20061214
  Transmission Date: 20070319
  Serious: Yes (Other)
  Sender: FDA-Public Use
  Company Number: 009481

PATIENT
  Age: 56 Year
  Sex: Female

DRUGS (2)
  1. TRIAMTERENE AND HYDROCHLOROTHIAZIDE [Suspect]
     Indication: JOINT SWELLING
     Dosage: 1 CAPS QD ORAL
     Route: 048
     Dates: start: 20061206, end: 20061207
  2. CARDIZEM [Concomitant]

REACTIONS (12)
  - ABDOMINAL PAIN [None]
  - ANAPHYLACTIC REACTION [None]
  - CYANOSIS [None]
  - DEHYDRATION [None]
  - DYSPNOEA [None]
  - HYPERSENSITIVITY [None]
  - MUSCLE SPASMS [None]
  - PALLOR [None]
  - SENSATION OF BLOOD FLOW [None]
  - SENSATION OF HEAVINESS [None]
  - SKIN WRINKLING [None]
  - URINE OUTPUT DECREASED [None]
